FAERS Safety Report 9636742 (Version 2)
Quarter: 2013Q4

REPORT INFORMATION
  Report Type: Spontaneous
  Country: DE (occurrence: DE)
  Receive Date: 20131022
  Receipt Date: 20131030
  Transmission Date: 20140711
  Serious: Yes (Other)
  Sender: FDA-Public Use
  Company Number: DE-AMGEN-DEUSP2013073093

PATIENT
  Age: 76 Year
  Sex: Female

DRUGS (1)
  1. PROLIA [Suspect]
     Indication: OSTEOPOROSIS POSTMENOPAUSAL
     Dosage: 60 MG, Q6MO
     Route: 058
     Dates: start: 20101206, end: 20121206

REACTIONS (5)
  - Spinal fracture [Unknown]
  - Pain [Recovered/Resolved]
  - Nausea [Unknown]
  - Hot flush [Unknown]
  - Pain in extremity [Recovered/Resolved]
